FAERS Safety Report 9154488 (Version 1)
Quarter: 2013Q1

REPORT INFORMATION
  Report Type: Spontaneous
  Country: US (occurrence: None)
  Receive Date: 20130308
  Receipt Date: 20130308
  Transmission Date: 20140127
  Serious: Yes (Other)
  Sender: FDA-Public Use
  Company Number: None

PATIENT
  Age: 24 Year
  Sex: Female
  Weight: 68.95 kg

DRUGS (1)
  1. OCELLA 3MG-0.03 BARR LABORATORIES [Suspect]
     Indication: CONTRACEPTION
     Dosage: ONE TABLET DAILY OTHER
     Route: 050
     Dates: start: 20100915, end: 20130131

REACTIONS (3)
  - Muscle spasms [None]
  - Abdominal pain upper [None]
  - Menorrhagia [None]
